FAERS Safety Report 24641168 (Version 1)
Quarter: 2024Q4

REPORT INFORMATION
  Report Type: Spontaneous
  Country: AE (occurrence: AE)
  Receive Date: 20241120
  Receipt Date: 20241120
  Transmission Date: 20250114
  Serious: Yes (Other)
  Sender: CHEPLAPHARM
  Company Number: AE-MLMSERVICE-20241029-PI243457-00246-1

PATIENT
  Age: 25 Year
  Sex: Female

DRUGS (17)
  1. OLANZAPINE [Suspect]
     Active Substance: OLANZAPINE
     Indication: Perinatal depression
     Dosage: DAILY DOSE: 10 MILLIGRAM
  2. OLANZAPINE [Suspect]
     Active Substance: OLANZAPINE
     Indication: Perinatal depression
     Dosage: INCREASED DOSE AT THE TIME OF DISCHARGE?DAILY DOSE: 15 MILLIGRAM
  3. OLANZAPINE [Suspect]
     Active Substance: OLANZAPINE
     Indication: Perinatal depression
     Dosage: DAILY DOSE: 5 MILLIGRAM
  4. SERTRALINE [Suspect]
     Active Substance: SERTRALINE HYDROCHLORIDE
     Indication: Perinatal depression
     Dosage: DAILY DOSE: 50 MILLIGRAM
  5. PROMETHAZINE [Suspect]
     Active Substance: PROMETHAZINE HYDROCHLORIDE
     Indication: Agitation
     Dosage: 25 MG TWICE DAILY AS NEEDED?DAILY DOSE: 50 MILLIGRAM
  6. CALCIUM [Concomitant]
     Active Substance: CALCIUM
     Dosage: DAILY DOSE: 400 MILLIGRAM
  7. MAGNESIUM [Concomitant]
     Active Substance: MAGNESIUM
     Dosage: DAILY DOSE: 150 MILLIGRAM
  8. ZINC [Concomitant]
     Active Substance: ZINC
     Dosage: DAILY DOSE: 5 MILLIGRAM
  9. CALCIUM CARBONATE [Concomitant]
     Active Substance: CALCIUM CARBONATE
     Dosage: DAILY DOSE: 600 MILLIGRAM
  10. CHOLECALCIFEROL [Concomitant]
     Active Substance: CHOLECALCIFEROL
     Dosage: HIGH-DOSE
     Route: 042
  11. CHOLECALCIFEROL [Concomitant]
     Active Substance: CHOLECALCIFEROL
     Dosage: HIGH-DOSE
     Route: 042
  12. IRON [Concomitant]
     Active Substance: IRON
     Indication: Mineral supplementation
     Dosage: TWICE DAILY AND LIPOSOMAL IRON 30 MG / LIPOSOMAL?DAILY DOSE: 30 MILLIGRAM
  13. FOLIC ACID [Concomitant]
     Active Substance: FOLIC ACID
     Indication: Vitamin supplementation
     Dosage: TWICE DAILY
  14. VITAMIN C [Concomitant]
     Active Substance: ASCORBIC ACID
     Indication: Vitamin supplementation
     Dosage: DAILY DOSE: 70 MILLIGRAM
  15. SODIUM CHLORIDE [Concomitant]
     Active Substance: SODIUM CHLORIDE
     Dosage: 0.9% NASAL SPRAY FOUR TIMES DAILY
  16. TRIHEXYPHENIDYL [Concomitant]
     Active Substance: TRIHEXYPHENIDYL
     Dosage: DAILY DOSE: 2 MILLIGRAM
  17. VITAMINS [Concomitant]
     Active Substance: VITAMINS
     Indication: Vitamin supplementation

REACTIONS (3)
  - Oculogyric crisis [Recovered/Resolved]
  - Dystonia [Unknown]
  - Intentional product use issue [Unknown]
